FAERS Safety Report 26082110 (Version 2)
Quarter: 2025Q4

REPORT INFORMATION
  Report Type: Spontaneous
  Country: US (occurrence: US)
  Receive Date: 20251124
  Receipt Date: 20251202
  Transmission Date: 20260117
  Serious: Yes (Life-Threatening, Hospitalization, Disabling, Other)
  Sender: PFIZER
  Company Number: US-PFIZER INC-PV202500135650

PATIENT
  Age: 12 Year
  Sex: Male

DRUGS (1)
  1. BLEOMYCIN SULFATE [Suspect]
     Active Substance: BLEOMYCIN SULFATE
     Indication: Craniopharyngioma
     Dosage: TOTAL OF 12 INTRACYSTIC BLEOMYCIN TREATMENTS (TOTAL OF 48 MG)

REACTIONS (3)
  - Acute necrotising myelitis [Unknown]
  - Toxicity to various agents [Unknown]
  - Off label use [Unknown]
